FAERS Safety Report 24340037 (Version 1)
Quarter: 2024Q3

REPORT INFORMATION
  Report Type: Spontaneous
  Country: US (occurrence: US)
  Receive Date: 20240919
  Receipt Date: 20240919
  Transmission Date: 20241017
  Serious: No
  Sender: PFIZER
  Company Number: US-PFIZER INC-PV202400122074

PATIENT
  Age: 76 Year
  Sex: Female

DRUGS (1)
  1. XELJANZ XR [Suspect]
     Active Substance: TOFACITINIB CITRATE
     Indication: Rheumatoid arthritis
     Dosage: 11 MG, 1X/DAY
     Route: 048
     Dates: start: 202207

REACTIONS (5)
  - Drug ineffective [Unknown]
  - COVID-19 [Unknown]
  - Micturition urgency [Not Recovered/Not Resolved]
  - Balance disorder [Unknown]
  - Limb discomfort [Unknown]
